FAERS Safety Report 7365785-3 (Version None)
Quarter: 2011Q1

REPORT INFORMATION
  Report Type: 
  Country: None (occurrence: None)
  Receive Date: 20110225
  Receipt Date: 20110120
  Transmission Date: 20110831
  Serious: No
  Sender: FDA-Public Use
  Company Number: 322344

PATIENT
  Age: 58 Year
  Sex: Male

DRUGS (17)
  1. NIZATINE (NIZATIDINE) [Concomitant]
  2. MELOXICAM [Concomitant]
  3. HYZAAR [Concomitant]
  4. BUPROPION HCL [Concomitant]
  5. ERGOCALCIFEROL [Concomitant]
  6. INDAPAMIDE [Concomitant]
  7. ACTOS [Concomitant]
  8. SPIRONOLACTONE [Concomitant]
  9. FLUVOXAMINE (FLUVOXAMINE) [Concomitant]
  10. HUMULIN 30/70 MIX (INSULIN HUMAN, INSULIN HUMAN INJECTION, ISOPHANE) [Concomitant]
  11. PRAZOSIN HCL (PRAZOSIN HYDROCHLORIDE) [Concomitant]
  12. SIMVASTATIN [Concomitant]
  13. ENTERIC ASPIRIN (ACETYLSALICYLIC ACID) [Concomitant]
  14. VICTOZA [Suspect]
     Indication: TYPE 2 DIABETES MELLITUS
     Dosage: SUBCUTANEOUS
     Route: 058
     Dates: start: 20110118
  15. METFORMIN HCL [Concomitant]
  16. GABAPENTIN [Concomitant]
  17. HUMALOG [Concomitant]

REACTIONS (3)
  - HEADACHE [None]
  - PYREXIA [None]
  - ABDOMINAL DISCOMFORT [None]
